FAERS Safety Report 6248163-X (Version None)
Quarter: 2009Q2

REPORT INFORMATION
  Report Type: 
  Country: None (occurrence: None)
  Receive Date: 20090624
  Receipt Date: 20090624
  Transmission Date: 20091009
  Serious: Yes (Death)
  Sender: FDA-Public Use
  Company Number: None

PATIENT
  Sex: Male
  Weight: 60.3 kg

DRUGS (1)
  1. PROTAMINE SULFATE [Suspect]
     Dosage: TOTAL 50MG ONCE IV
     Route: 042
     Dates: start: 20090605

REACTIONS (3)
  - BRADYCARDIA [None]
  - CARDIAC ARREST [None]
  - HYPOTENSION [None]
